FAERS Safety Report 4473872-2 (Version None)
Quarter: 2004Q4

REPORT INFORMATION
  Report Type: 
  Country: None (occurrence: None)
  Receive Date: 20041008
  Receipt Date: 20041008
  Transmission Date: 20050328
  Serious: Yes (Other)
  Sender: FDA-Public Use
  Company Number: None

PATIENT
  Sex: Male
  Weight: 95.2554 kg

DRUGS (1)
  1. VIOXX [Suspect]
     Dosage: 1 DAY ORAL
     Route: 048

REACTIONS (5)
  - ANXIETY [None]
  - CHEST DISCOMFORT [None]
  - HYPERHIDROSIS [None]
  - NAUSEA [None]
  - TINNITUS [None]
